FAERS Safety Report 16335007 (Version 2)
Quarter: 2019Q2

REPORT INFORMATION
  Report Type: Spontaneous
  Country: US (occurrence: US)
  Receive Date: 20190520
  Receipt Date: 20190529
  Transmission Date: 20190711
  Serious: No
  Sender: FDA-Public Use
  Company Number: US-AMGEN-USASP2019078180

PATIENT
  Age: 53 Year
  Sex: Female
  Weight: 69.84 kg

DRUGS (1)
  1. REPATHA [Suspect]
     Active Substance: EVOLOCUMAB
     Indication: HYPERLIPIDAEMIA
     Dosage: 140 MILLIGRAM, Q2WK
     Route: 065
     Dates: start: 20161111

REACTIONS (3)
  - Myalgia [Recovering/Resolving]
  - Arthralgia [Recovered/Resolved]
  - Muscle contractions involuntary [Unknown]

NARRATIVE: CASE EVENT DATE: 2016
